FAERS Safety Report 4731380-5 (Version None)
Quarter: 2005Q3

REPORT INFORMATION
  Report Type: 
  Country: None (occurrence: None)
  Receive Date: 20050801
  Receipt Date: 20050714
  Transmission Date: 20060218
  Serious: Yes (Other)
  Sender: FDA-Public Use
  Company Number: TRP_0177_2005

PATIENT
  Age: 45 Year
  Sex: Female

DRUGS (3)
  1. RIBASPHERE [Suspect]
     Indication: HEPATITIS C
     Dosage: DF, PO
     Route: 048
     Dates: start: 20050603
  2. PEG-INTRON/PEGINTERFERON ALFA-2B/SCHERING-PLOUGH / REDIPAN [Suspect]
     Indication: HEPATITIS C
     Dosage: DF, SC
     Route: 058
     Dates: start: 20050603
  3. XANAX - SLOW RELEASE [Concomitant]

REACTIONS (1)
  - HALLUCINATION, VISUAL [None]
